FAERS Safety Report 6505910-7 (Version None)
Quarter: 2009Q4

REPORT INFORMATION
  Report Type: 
  Country: None (occurrence: None)
  Receive Date: 20091218
  Receipt Date: 20091208
  Transmission Date: 20100525
  Serious: Yes (Hospitalization, Other)
  Sender: FDA-Public Use
  Company Number: US-ABBOTT-09P-163-0604380-00

PATIENT
  Sex: Male
  Weight: 113.5 kg

DRUGS (23)
  1. TRILIPIX [Suspect]
     Indication: BLOOD CHOLESTEROL INCREASED
     Dates: start: 20090601, end: 20091001
  2. TRILIPIX [Suspect]
     Indication: BLOOD TRIGLYCERIDES INCREASED
  3. UNKNOWN BLOOD PRESSURE MEDICATION [Concomitant]
     Indication: HYPERTENSION
  4. SIMVASTATIN [Concomitant]
     Indication: BLOOD CHOLESTEROL INCREASED
     Route: 048
     Dates: start: 20090808
  5. BABY ASPIRIN [Concomitant]
     Indication: DRUG USE FOR UNKNOWN INDICATION
  6. OMEGA 3 OIL [Concomitant]
     Indication: DRUG USE FOR UNKNOWN INDICATION
  7. KEFLEX [Concomitant]
     Indication: DRUG USE FOR UNKNOWN INDICATION
     Route: 048
     Dates: start: 20090812
  8. NICODERM [Concomitant]
     Indication: DRUG USE FOR UNKNOWN INDICATION
     Dosage: PATCH
     Route: 062
     Dates: start: 20090807
  9. TRANXENE [Concomitant]
     Indication: DRUG USE FOR UNKNOWN INDICATION
     Route: 048
     Dates: start: 20090810
  10. ALLOPURINOL [Concomitant]
     Indication: DRUG USE FOR UNKNOWN INDICATION
  11. ALLOPURINOL [Concomitant]
     Dates: start: 20090806
  12. NEXIUM [Concomitant]
     Indication: DRUG USE FOR UNKNOWN INDICATION
     Route: 048
  13. ZESTRIL [Concomitant]
     Indication: DRUG USE FOR UNKNOWN INDICATION
     Route: 048
  14. AMLODIPINE [Concomitant]
     Indication: DRUG USE FOR UNKNOWN INDICATION
     Route: 048
  15. ZANTAC [Concomitant]
     Indication: DRUG USE FOR UNKNOWN INDICATION
     Route: 048
     Dates: start: 20090808
  16. COLCHICINE [Concomitant]
     Indication: DRUG USE FOR UNKNOWN INDICATION
     Route: 048
  17. INDOCIN SR [Concomitant]
     Indication: DRUG USE FOR UNKNOWN INDICATION
     Dosage: AT SUPPER
     Route: 048
  18. LORCET-HD [Concomitant]
     Indication: PAIN
     Dosage: EVERY 4-6 HOURS
  19. DURAGESIC-100 [Concomitant]
     Indication: DRUG USE FOR UNKNOWN INDICATION
     Dosage: PATCH
  20. ADVAIR DISKUS 100/50 [Concomitant]
     Indication: DRUG USE FOR UNKNOWN INDICATION
  21. ALBUTEROL [Concomitant]
     Indication: DRUG USE FOR UNKNOWN INDICATION
  22. PANTOPRAZOLE [Concomitant]
     Indication: DRUG USE FOR UNKNOWN INDICATION
     Dosage: 1 VIAL = 40 MG, AT BEDTIME
     Route: 042
     Dates: start: 20090806
  23. SALINE [Concomitant]
     Indication: DRUG USE FOR UNKNOWN INDICATION
     Route: 042
     Dates: start: 20090806

REACTIONS (7)
  - DEEP VEIN THROMBOSIS [None]
  - DIZZINESS [None]
  - FACIAL PALSY [None]
  - MEMORY IMPAIRMENT [None]
  - MUSCLE SPASMS [None]
  - PAIN IN EXTREMITY [None]
  - PHLEBITIS [None]
